FAERS Safety Report 5179573-X (Version None)
Quarter: 2006Q4

REPORT INFORMATION
  Report Type: 
  Country: None (occurrence: None)
  Receive Date: 20061219
  Receipt Date: 20061212
  Transmission Date: 20070319
  Serious: Yes (Life-Threatening)
  Sender: FDA-Public Use
  Company Number: PL-ROXANE LABORATORIES, INC-2006-DE-06645GD

PATIENT
  Age: 30 Year
  Sex: Female

DRUGS (3)
  1. ASPIRIN [Suspect]
     Indication: ALLERGY TEST
     Route: 048
  2. NAPROXEN [Suspect]
     Route: 048
     Dates: start: 20050601
  3. IBUPROFEN [Suspect]
     Route: 048

REACTIONS (13)
  - ABDOMINAL DISCOMFORT [None]
  - CREATININE URINE INCREASED [None]
  - DYSPNOEA [None]
  - FLUSHING [None]
  - HEART RATE INCREASED [None]
  - HYPERSENSITIVITY [None]
  - NASAL CONGESTION [None]
  - OXYGEN SATURATION DECREASED [None]
  - PULMONARY OEDEMA [None]
  - RASH [None]
  - SHOCK [None]
  - THROAT IRRITATION [None]
  - THROAT TIGHTNESS [None]
